FAERS Safety Report 7837315-0 (Version None)
Quarter: 2011Q4

REPORT INFORMATION
  Report Type: 
  Country: None (occurrence: None)
  Receive Date: 20111024
  Receipt Date: 20111014
  Transmission Date: 20120403
  Serious: Yes (Disabling)
  Sender: FDA-Public Use
  Company Number: BR-ASTRAZENECA-2011SE62227

PATIENT
  Age: 61 Year
  Sex: Female
  Weight: 64 kg

DRUGS (8)
  1. ATENOLOL [Suspect]
     Indication: HYPERTENSION
     Route: 048
     Dates: end: 20100101
  2. ATENOLOL [Suspect]
     Route: 048
     Dates: start: 20100101
  3. ENTOCORT EC [Suspect]
     Dosage: DAILY
     Route: 048
     Dates: start: 20110701
  4. ATENOLOL [Suspect]
     Dosage: GENERIC ATENOLOL 50 MG BID
     Route: 048
     Dates: start: 20100101, end: 20100101
  5. ENTOCORT EC [Suspect]
     Route: 048
     Dates: end: 20110701
  6. ENTOCORT EC [Suspect]
     Indication: CROHN'S DISEASE
     Route: 048
     Dates: start: 20100101
  7. CAPOTEN [Concomitant]
     Indication: HYPERTENSION
     Dosage: AS REQUIRED
     Route: 048
  8. MICARDIS [Concomitant]
     Indication: HYPERTENSION
     Dosage: DAILY
     Route: 048

REACTIONS (15)
  - ABDOMINAL DISTENSION [None]
  - PAIN IN EXTREMITY [None]
  - GENERALISED ERYTHEMA [None]
  - FEELING HOT [None]
  - DYSPNOEA [None]
  - WEIGHT INCREASED [None]
  - ERYTHEMA [None]
  - SWELLING [None]
  - BLOOD PRESSURE INCREASED [None]
  - DRUG INEFFECTIVE [None]
  - BURNING SENSATION [None]
  - INCREASED ANTEROPOSTERIOR CHEST DIAMETER [None]
  - PYREXIA [None]
  - HYPERHIDROSIS [None]
  - SWELLING FACE [None]
